FAERS Safety Report 4786495-2 (Version None)
Quarter: 2005Q3

REPORT INFORMATION
  Report Type: 
  Country: None (occurrence: None)
  Receive Date: 20050927
  Receipt Date: 20050721
  Transmission Date: 20060218
  Serious: No
  Sender: FDA-Public Use
  Company Number: USA0507103450

PATIENT
  Age: 7 Year
  Sex: Male
  Weight: 27 kg

DRUGS (1)
  1. STRATTERA [Suspect]
     Indication: ATTENTION DEFICIT/HYPERACTIVITY DISORDER
     Dosage: 40 MG DAY
     Dates: start: 20020101, end: 20050707

REACTIONS (6)
  - AGGRESSION [None]
  - ANGER [None]
  - DECREASED APPETITE [None]
  - SCREAMING [None]
  - TIC [None]
  - UNDERWEIGHT [None]
